FAERS Safety Report 6042289-1 (Version None)
Quarter: 2009Q1

REPORT INFORMATION
  Report Type: 
  Country: None (occurrence: None)
  Receive Date: 20090116
  Receipt Date: 20090107
  Transmission Date: 20090719
  Serious: Yes (Hospitalization)
  Sender: FDA-Public Use
  Company Number: US-JNJFOC-20090101131

PATIENT
  Sex: Female
  Weight: 38 kg

DRUGS (10)
  1. INFLIXIMAB [Suspect]
     Route: 042
  2. INFLIXIMAB [Suspect]
     Route: 042
  3. INFLIXIMAB [Suspect]
     Route: 042
  4. INFLIXIMAB [Suspect]
     Route: 042
  5. INFLIXIMAB [Suspect]
     Route: 042
  6. INFLIXIMAB [Suspect]
     Indication: COLITIS ULCERATIVE
     Route: 042
  7. HYDROCORTISONE [Concomitant]
     Indication: COLITIS ULCERATIVE
     Route: 054
  8. PREVACID [Concomitant]
     Route: 048
  9. FERROUS SULPHATE [Concomitant]
     Route: 048
  10. TYLENOL (CAPLET) [Concomitant]
     Route: 048

REACTIONS (2)
  - INFECTION [None]
  - WHITE BLOOD CELL COUNT INCREASED [None]
